FAERS Safety Report 14822435 (Version 2)
Quarter: 2018Q2

REPORT INFORMATION
  Report Type: Spontaneous
  Country: GB (occurrence: GB)
  Receive Date: 20180427
  Receipt Date: 20180622
  Transmission Date: 20180711
  Serious: Yes (Hospitalization)
  Sender: FDA-Public Use
  Company Number: GB-TEVA-2018-GB-887040

PATIENT
  Age: 71 Year
  Sex: Female

DRUGS (12)
  1. AMOXICILLIN W/CLAVULANIC ACID [Suspect]
     Active Substance: AMOXICILLIN\CLAVULANIC ACID
     Indication: PNEUMONIA
     Dosage: 3.6 GRAM DAILY;
     Route: 042
     Dates: start: 20180219, end: 20180221
  2. COLECALCIFEROL [Concomitant]
     Active Substance: CHOLECALCIFEROL
  3. SALBUTAMOL [Concomitant]
     Active Substance: ALBUTEROL
     Indication: PRODUCT USED FOR UNKNOWN INDICATION
  4. SIMVASTATIN. [Concomitant]
     Active Substance: SIMVASTATIN
  5. PARACETAMOL [Concomitant]
     Active Substance: ACETAMINOPHEN
  6. BENDROFLUMETHIAZIDE [Concomitant]
     Active Substance: BENDROFLUMETHIAZIDE
  7. HYPROMELLOSE [Concomitant]
     Active Substance: HYPROMELLOSES
  8. LERCANIDIPINE HYDROCHLORIDE [Concomitant]
     Active Substance: LERCANIDIPINE HYDROCHLORIDE
  9. RIVAROXABAN [Concomitant]
     Active Substance: RIVAROXABAN
     Indication: PRODUCT USED FOR UNKNOWN INDICATION
  10. BISOPROLOL [Concomitant]
     Active Substance: BISOPROLOL
     Indication: PRODUCT USED FOR UNKNOWN INDICATION
  11. CITALOPRAM [Concomitant]
     Active Substance: CITALOPRAM HYDROBROMIDE
     Indication: PRODUCT USED FOR UNKNOWN INDICATION
  12. PREDNISOLONE. [Concomitant]
     Active Substance: PREDNISOLONE

REACTIONS (1)
  - Liver function test abnormal [Not Recovered/Not Resolved]

NARRATIVE: CASE EVENT DATE: 20180219
